FAERS Safety Report 10020764 (Version 2)
Quarter: 2014Q1

REPORT INFORMATION
  Report Type: Spontaneous
  Country: DE (occurrence: DE)
  Receive Date: 20140319
  Receipt Date: 20140319
  Transmission Date: 20141002
  Serious: Yes (Hospitalization, Other)
  Sender: FDA-Public Use
  Company Number: DE-AMGEN-DEUSP2013087054

PATIENT
  Age: 68 Year
  Sex: Female

DRUGS (2)
  1. ENBREL [Suspect]
     Indication: PSORIASIS
     Dosage: 50 MG (FROM 23 YEARS), UNK
     Route: 065
  2. METHOTREXATE SODIUM [Suspect]
     Indication: PRODUCT USED FOR UNKNOWN INDICATION
     Dosage: UNK
     Route: 065

REACTIONS (12)
  - Cholecystitis [Unknown]
  - Urinary tract disorder [Unknown]
  - Cystitis [Unknown]
  - Dyspnoea [Unknown]
  - Cardiac disorder [Unknown]
  - Abdominal distension [Unknown]
  - Chest discomfort [Unknown]
  - Vaginal infection [Unknown]
  - Genital infection fungal [Unknown]
  - Fungal infection [Unknown]
  - Injection site reaction [Unknown]
  - Nasopharyngitis [Unknown]
